FAERS Safety Report 21089561 (Version 1)
Quarter: 2022Q3

REPORT INFORMATION
  Report Type: Spontaneous
  Country: US (occurrence: None)
  Receive Date: 20220715
  Receipt Date: 20220715
  Transmission Date: 20221026
  Serious: Yes (Other)
  Sender: FDA-Public Use
  Company Number: 2022A255728

PATIENT
  Age: 7 Year
  Sex: Male

DRUGS (1)
  1. SELUMETINIB [Suspect]
     Active Substance: SELUMETINIB
     Route: 065

REACTIONS (12)
  - Brain neoplasm [Unknown]
  - Cervical vertebral fracture [Unknown]
  - Drug ineffective [Unknown]
  - Illness [Unknown]
  - Migraine [Unknown]
  - Pain [Unknown]
  - Abdominal pain [Unknown]
  - Weight increased [Unknown]
  - Decreased appetite [Unknown]
  - Quality of life decreased [Unknown]
  - Asthenia [Unknown]
  - Nausea [Unknown]
